FAERS Safety Report 9260048 (Version 1)
Quarter: 2013Q2

REPORT INFORMATION
  Report Type: Spontaneous
  Country: US (occurrence: US)
  Receive Date: 20130429
  Receipt Date: 20130429
  Transmission Date: 20140414
  Serious: No
  Sender: FDA-Public Use
  Company Number: US-JNJFOC-20130316517

PATIENT
  Age: 66 Year
  Sex: Female
  Weight: 77.11 kg

DRUGS (8)
  1. INVEGA SUSTENNA [Suspect]
     Indication: SCHIZOAFFECTIVE DISORDER BIPOLAR TYPE
     Route: 030
     Dates: start: 2012
  2. SYMMETREL [Concomitant]
     Route: 065
  3. SIMVASTATIN [Concomitant]
     Route: 065
  4. DEPAKOTE [Concomitant]
     Route: 065
  5. WELLBUTRIN [Concomitant]
     Route: 065
  6. CLONAZEPAM [Concomitant]
     Route: 065
  7. UNKNOWN MEDICATION [Concomitant]
     Route: 065
  8. LOSARTAN [Concomitant]
     Route: 065

REACTIONS (5)
  - Nausea [Not Recovered/Not Resolved]
  - Malaise [Not Recovered/Not Resolved]
  - Fatigue [Not Recovered/Not Resolved]
  - Somnolence [Not Recovered/Not Resolved]
  - Polyuria [Unknown]
